FAERS Safety Report 6229107-3 (Version None)
Quarter: 2009Q2

REPORT INFORMATION
  Report Type: 
  Country: None (occurrence: None)
  Receive Date: 20090601
  Receipt Date: 20090325
  Transmission Date: 20091009
  Serious: Yes (Other)
  Sender: FDA-Public Use
  Company Number: US200903006594

PATIENT
  Age: 71 Year
  Sex: Female
  Weight: 77.1 kg

DRUGS (5)
  1. BYETTA [Suspect]
     Indication: TYPE 2 DIABETES MELLITUS
     Dosage: 5 UG, 2/D, SUBCUTANEOUS
     Route: 058
  2. EXENATIDE PEN [Concomitant]
  3. JANUVIA [Concomitant]
  4. GLUCOPHAGE [Concomitant]
  5. ACTOS [Concomitant]

REACTIONS (6)
  - BACK PAIN [None]
  - DECREASED APPETITE [None]
  - MUSCLE SPASMS [None]
  - NAUSEA [None]
  - RENAL FAILURE [None]
  - WEIGHT DECREASED [None]
